FAERS Safety Report 21480569 (Version 1)
Quarter: 2022Q4

REPORT INFORMATION
  Report Type: Spontaneous
  Country: US (occurrence: US)
  Receive Date: 20221019
  Receipt Date: 20221019
  Transmission Date: 20230113
  Serious: No
  Sender: FDA-Public Use
  Company Number: US-INCYTE CORPORATION-2022IN009800

PATIENT

DRUGS (5)
  1. JAKAFI [Interacting]
     Active Substance: RUXOLITINIB
     Indication: Acute myeloid leukaemia
     Dosage: 5 MILLIGRAM
     Route: 048
  2. JAKAFI [Interacting]
     Active Substance: RUXOLITINIB
     Dosage: 10 MILLIGRAM, BID
     Route: 048
     Dates: start: 20220622
  3. JAKAFI [Interacting]
     Active Substance: RUXOLITINIB
     Dosage: 10 MILLIGRAM, BID
     Route: 048
     Dates: start: 20211117
  4. FLUCONAZOLE [Interacting]
     Active Substance: FLUCONAZOLE
     Route: 065
  5. PROGESTERONE [Interacting]
     Active Substance: PROGESTERONE
     Route: 065

REACTIONS (5)
  - Hunger [Unknown]
  - Mood altered [Unknown]
  - Drug interaction [Unknown]
  - Weight increased [Unknown]
  - Off label use [Unknown]

NARRATIVE: CASE EVENT DATE: 20220622
